APPROVED DRUG PRODUCT: DICLOFENAC SODIUM
Active Ingredient: DICLOFENAC SODIUM
Strength: 0.1%
Dosage Form/Route: SOLUTION/DROPS;OPHTHALMIC
Application: N020809 | Product #001
Applicant: FALCON PHARMACEUTICALS LTD
Approved: May 4, 1998 | RLD: No | RS: No | Type: DISCN